FAERS Safety Report 4806456-4 (Version None)
Quarter: 2005Q4

REPORT INFORMATION
  Report Type: 
  Country: None (occurrence: None)
  Receive Date: 20051019
  Receipt Date: 20051006
  Transmission Date: 20060501
  Serious: Yes (Other)
  Sender: FDA-Public Use
  Company Number: 2005056904

PATIENT
  Age: 73 Year
  Sex: Male
  Weight: 83.9154 kg

DRUGS (4)
  1. VIAGRA [Suspect]
     Indication: ERECTILE DYSFUNCTION
     Dosage: 50 MG (50 MG, AS NECESSARY), ORAL
     Route: 048
  2. LIPITOR [Suspect]
     Indication: BLOOD CHOLESTEROL INCREASED
     Dosage: 10 MG (10 MG, 1 IN 1 D), ORAL
     Route: 048
     Dates: start: 19970101
  3. SAW PALMETTO (SAW PALMETTO) [Concomitant]
  4. VITAMIN E [Concomitant]

REACTIONS (9)
  - CATHETERISATION CARDIAC [None]
  - CYANOPSIA [None]
  - DRUG EFFECT DECREASED [None]
  - DYSPEPSIA [None]
  - HEADACHE [None]
  - MYOPIA [None]
  - NASAL CONGESTION [None]
  - PEYRONIE'S DISEASE [None]
  - VITREOUS FLOATERS [None]
